FAERS Safety Report 19739728 (Version 1)
Quarter: 2021Q3

REPORT INFORMATION
  Report Type: Spontaneous
  Country: JP (occurrence: JP)
  Receive Date: 20210823
  Receipt Date: 20210823
  Transmission Date: 20211014
  Serious: Yes (Hospitalization)
  Sender: FDA-Public Use
  Company Number: JP-SETONPHARMA-2021SETLIT00043

PATIENT
  Age: 54 Year
  Sex: Female

DRUGS (10)
  1. PENTAMIDINE ISETHIONATE. [Suspect]
     Active Substance: PENTAMIDINE ISETHIONATE
     Indication: HIV INFECTION
     Dosage: 3 MG.KG?1.DAY?1
     Route: 042
  2. METHOTREXATE. [Concomitant]
     Active Substance: METHOTREXATE
     Indication: NEUROMYELITIS OPTICA SPECTRUM DISORDER
     Dosage: 4 MG WEEK?1
     Route: 048
  3. METHYLPREDNISOLONE. [Concomitant]
     Active Substance: METHYLPREDNISOLONE
     Dosage: 1 G.DAY?1 FOR 3 DAYS
     Route: 042
  4. PREDNISOLONE. [Concomitant]
     Active Substance: PREDNISOLONE
     Dosage: 60 MG DAY?1
     Route: 065
  5. PREDNISOLONE. [Concomitant]
     Active Substance: PREDNISOLONE
     Dosage: 60 MG.DAY?1
     Route: 065
  6. METHYLPREDNISOLONE. [Concomitant]
     Active Substance: METHYLPREDNISOLONE
     Dosage: 1 G DAY?1 FOR 3 DAYS
     Route: 065
  7. PENTAMIDINE ISETHIONATE. [Suspect]
     Active Substance: PENTAMIDINE ISETHIONATE
     Dosage: 4 MG.KG?1.DAY?1
     Route: 042
  8. AZATHIOPRINE. [Concomitant]
     Active Substance: AZATHIOPRINE
     Indication: NEUROMYELITIS OPTICA SPECTRUM DISORDER
     Dosage: 50 MG DAY?1
     Route: 065
  9. DORIPENEM. [Concomitant]
     Active Substance: DORIPENEM
     Dosage: 1.0 G.DAY?1
     Route: 042
  10. AZITHROMYCIN ANHYDROUS. [Concomitant]
     Active Substance: AZITHROMYCIN ANHYDROUS
     Dosage: 0.5 G.DAY?1
     Route: 065

REACTIONS (2)
  - Condition aggravated [Recovered/Resolved]
  - Lung opacity [Recovered/Resolved]
